FAERS Safety Report 4909890-7 (Version None)
Quarter: 2006Q1

REPORT INFORMATION
  Report Type: 
  Country: None (occurrence: None)
  Receive Date: 20060213
  Receipt Date: 20060201
  Transmission Date: 20060701
  Serious: Yes (Hospitalization, Other)
  Sender: FDA-Public Use
  Company Number: PHBS2006NL01759

PATIENT
  Sex: Male

DRUGS (3)
  1. CYCLOSPORINE [Suspect]
     Indication: RENAL TRANSPLANT
     Dosage: 300 MG/DAY
     Route: 065
     Dates: start: 20000201
  2. MYCOPHENOLATE MOFETIL [Suspect]
     Indication: RENAL TRANSPLANT
     Dosage: 2 G/DAY
     Route: 065
     Dates: start: 20000201
  3. PREDNISOLONE [Concomitant]
     Dosage: 10 MG/DAY
     Route: 065
     Dates: start: 20000201

REACTIONS (5)
  - BRONCHIECTASIS [None]
  - DYSPNOEA [None]
  - LUNG DISORDER [None]
  - PRODUCTIVE COUGH [None]
  - RHONCHI [None]
